FAERS Safety Report 10203248 (Version 2)
Quarter: 2014Q2

REPORT INFORMATION
  Report Type: Report from Study
  Country: FR (occurrence: FR)
  Receive Date: 20140529
  Receipt Date: 20140529
  Transmission Date: 20141212
  Serious: Yes (Death, Hospitalization)
  Sender: FDA-Public Use
  Company Number: FR-ROCHE-1393179

PATIENT
  Age: 53 Year
  Sex: Male

DRUGS (11)
  1. ZELBORAF [Suspect]
     Indication: MALIGNANT MELANOMA
     Route: 048
     Dates: start: 201306, end: 201310
  2. METFORMIN [Concomitant]
     Indication: DIABETES MELLITUS
     Route: 048
     Dates: start: 201301
  3. JANUVIA [Concomitant]
     Indication: DIABETES MELLITUS
     Route: 048
     Dates: start: 201301
  4. GLIMEPIRIDE [Concomitant]
     Indication: DIABETES MELLITUS
     Route: 048
     Dates: start: 201301
  5. EXFORGE [Concomitant]
     Indication: HYPERTENSION
     Route: 048
     Dates: start: 201301
  6. SPASFON (FRANCE) [Concomitant]
     Indication: PAIN
     Route: 065
  7. DOLIPRANE [Concomitant]
     Indication: PAIN
     Route: 065
  8. TOPALGIC (FRANCE) [Concomitant]
     Indication: PAIN
     Route: 065
  9. TOPALGIC (FRANCE) [Concomitant]
     Route: 065
  10. INEXIUM [Concomitant]
     Indication: DYSPEPSIA
     Route: 065
  11. GAVISCON (FRANCE) [Concomitant]
     Indication: DYSPEPSIA
     Route: 065

REACTIONS (4)
  - Neoplasm malignant [Fatal]
  - Liver disorder [Not Recovered/Not Resolved]
  - Sunburn [Unknown]
  - Myalgia [Not Recovered/Not Resolved]
